FAERS Safety Report 9406911 (Version 1)
Quarter: 2013Q3

REPORT INFORMATION
  Report Type: Spontaneous
  Country: US (occurrence: US)
  Receive Date: 20130718
  Receipt Date: 20130718
  Transmission Date: 20140515
  Serious: No
  Sender: FDA-Public Use
  Company Number: US-PFIZER INC-2013206843

PATIENT
  Age: 72 Year
  Sex: Male
  Weight: 102 kg

DRUGS (16)
  1. SOMAVERT [Suspect]
     Indication: ACROMEGALY
     Dosage: 10 MG, 1X/DAY
     Route: 058
  2. HUMALOG [Concomitant]
     Dosage: UNK, 100/ML
  3. SINGULAIR [Concomitant]
     Dosage: 10 MG, UNK
  4. AMBIEN [Concomitant]
     Dosage: 12.5 MG, UNK
  5. CELEBREX [Concomitant]
     Dosage: 100 MG, UNK
  6. LIPITOR [Concomitant]
     Dosage: 20 MG, UNK
  7. LANTUS [Concomitant]
     Dosage: UNK, 100/ML
  8. ENALAPRIL [Concomitant]
     Dosage: 2.5 MG, UNK
  9. GABAPENTIN [Concomitant]
     Dosage: 100 MG, UNK
  10. LEVOTHYROXINE [Concomitant]
     Dosage: 25 UG, UNK
  11. AMITRIPTYLINE [Concomitant]
     Dosage: 100 MG, UNK
  12. SENNA [Concomitant]
     Dosage: 8.6 MG, UNK
  13. LORTAB [Concomitant]
     Dosage: UNK, 5 (NO UNITS PROVIDED)
  14. MELATONIN [Concomitant]
     Dosage: 1 MG, UNK
  15. ASPIRIN [Concomitant]
     Dosage: 81 MG, UNK
  16. GLUCO/CHONDR [Concomitant]
     Dosage: UNK

REACTIONS (3)
  - Injection site mass [Unknown]
  - Injection site bruising [Unknown]
  - Injection site pain [Unknown]
